FAERS Safety Report 5000200-6 (Version None)
Quarter: 2006Q2

REPORT INFORMATION
  Report Type: 
  Country: None (occurrence: None)
  Receive Date: 20060511
  Receipt Date: 20051120
  Transmission Date: 20061013
  Serious: Yes (Other)
  Sender: FDA-Public Use
  Company Number: CA-AMGEN-US158596

PATIENT
  Sex: Female

DRUGS (10)
  1. ENBREL [Suspect]
     Indication: RHEUMATOID ARTHRITIS
     Route: 058
     Dates: start: 20041109
  2. PANTOPRAZOLE SODIUM [Concomitant]
     Dates: start: 20030820
  3. ASCORBIC ACID [Concomitant]
  4. VITAMIN E [Concomitant]
  5. GLUCOSAMINE [Concomitant]
  6. FISH OIL [Concomitant]
  7. ADVAIR DISKUS 100/50 [Concomitant]
     Route: 055
     Dates: start: 20020101
  8. VENTOLIN [Concomitant]
     Dates: start: 20020101
  9. MOBIC [Concomitant]
     Dates: start: 20020829
  10. FLAX SEED OIL [Concomitant]

REACTIONS (1)
  - TRIGEMINAL NEURALGIA [None]
